FAERS Safety Report 8850562 (Version 3)
Quarter: 2014Q1

REPORT INFORMATION
  Report Type: Spontaneous
  Country: US (occurrence: US)
  Receive Date: 20121019
  Receipt Date: 20140114
  Transmission Date: 20141002
  Serious: Yes (Hospitalization, Other)
  Sender: FDA-Public Use
  Company Number: CHPA2012US021454

PATIENT
  Age: 53 Year
  Sex: Female

DRUGS (1)
  1. EXCEDRIN MIGRAINE [Suspect]
     Indication: MIGRAINE
     Dosage: 2 DF, BID
     Route: 048
     Dates: start: 2010

REACTIONS (13)
  - Gastric disorder [Not Recovered/Not Resolved]
  - Colitis [Not Recovered/Not Resolved]
  - Infection [Recovering/Resolving]
  - Irritable bowel syndrome [Not Recovered/Not Resolved]
  - Gastrooesophageal reflux disease [Not Recovered/Not Resolved]
  - Cholelithiasis [Recovered/Resolved]
  - Nephrolithiasis [Recovering/Resolving]
  - Post gastric surgery syndrome [Not Recovered/Not Resolved]
  - Headache [Not Recovered/Not Resolved]
  - Muscle fatigue [Not Recovered/Not Resolved]
  - Gastrointestinal disorder [Not Recovered/Not Resolved]
  - Vomiting [Not Recovered/Not Resolved]
  - Overdose [Unknown]
